FAERS Safety Report 9061648 (Version 1)
Quarter: 2013Q1

REPORT INFORMATION
  Report Type: Spontaneous
  Country: US (occurrence: None)
  Receive Date: 20130118
  Receipt Date: 20130118
  Transmission Date: 20140127
  Serious: Yes (Death)
  Sender: FDA-Public Use
  Company Number: DAV-AE-DIA-13-03

PATIENT
  Age: 27 Year
  Sex: Male

DRUGS (1)
  1. DIAZEPAM [Suspect]
     Dosage: UNKNOWN,  UNKNOWN

REACTIONS (3)
  - Overdose [None]
  - Toxicity to various agents [None]
  - Drug interaction [None]
